FAERS Safety Report 7304242-7 (Version None)
Quarter: 2011Q1

REPORT INFORMATION
  Report Type: 
  Country: None (occurrence: None)
  Receive Date: 20110221
  Receipt Date: 20110207
  Transmission Date: 20110831
  Serious: Yes (Hospitalization, Other)
  Sender: FDA-Public Use
  Company Number: US-BAYER-201035110NA

PATIENT
  Sex: Female

DRUGS (6)
  1. KENALOG [Concomitant]
  2. CEFTIN [Concomitant]
     Dosage: 250 MG, UNK
  3. YAZ [Suspect]
     Indication: PRODUCT USED FOR UNKNOWN INDICATION
     Dosage: UNK
     Route: 048
     Dates: start: 20080501, end: 20090101
  4. DEPO-PROVERA [Concomitant]
     Dosage: UNK
     Dates: start: 20100618
  5. PRILOSEC [Concomitant]
     Dosage: 20 MG, UNK
  6. DEPO-PROVERA [Concomitant]
     Indication: CONTRACEPTION
     Dosage: UNK
     Dates: start: 20090601, end: 20100101

REACTIONS (9)
  - CHOLELITHIASIS [None]
  - GASTROOESOPHAGEAL REFLUX DISEASE [None]
  - CHOLECYSTITIS CHRONIC [None]
  - ABDOMINAL PAIN UPPER [None]
  - WEIGHT INCREASED [None]
  - PAIN [None]
  - MENSTRUAL DISORDER [None]
  - NAUSEA [None]
  - FLANK PAIN [None]
